FAERS Safety Report 11625472 (Version 2)
Quarter: 2015Q4

REPORT INFORMATION
  Report Type: Spontaneous
  Country: IT (occurrence: IT)
  Receive Date: 20151013
  Receipt Date: 20151106
  Transmission Date: 20160304
  Serious: Yes (Death, Other)
  Sender: FDA-Public Use
  Company Number: IT-TEVA-600237ACC

PATIENT
  Age: 62 Year
  Sex: Male

DRUGS (6)
  1. NAVELBINE [Suspect]
     Active Substance: VINORELBINE TARTRATE
     Indication: PRODUCT USED FOR UNKNOWN INDICATION
     Dosage: 120 MG TOTAL, CAPSULE, SOFT
     Route: 048
     Dates: start: 20150720, end: 20150720
  2. CISPLATINO TEVA ITALIA [Suspect]
     Active Substance: CISPLATIN
     Indication: LUNG SQUAMOUS CELL CARCINOMA METASTATIC
     Dosage: 150 MG TOTAL, CONCENTRATE FOR SOLUTION FOR INFUSION
     Route: 042
     Dates: start: 20150720, end: 20150720
  3. NAVELBINE [Suspect]
     Active Substance: VINORELBINE TARTRATE
     Dosage: 60 MG/M2 (4 CAPSULE 30 MG) ON DAYS 1 AND 8
     Route: 048
     Dates: start: 20150727
  4. CISPLATINO TEVA ITALIA [Suspect]
     Active Substance: CISPLATIN
     Dosage: 75 MG/M2 (DAY 1)
     Dates: start: 20150720
  5. NAVELBINE [Suspect]
     Active Substance: VINORELBINE TARTRATE
     Indication: PRODUCT USED FOR UNKNOWN INDICATION
     Dosage: 120 MG TOTAL
     Route: 048
     Dates: start: 20150727, end: 20150727
  6. NAVELBINE [Suspect]
     Active Substance: VINORELBINE TARTRATE
     Dosage: 60 MG/M2 (4 CAPSULE 30 MG) ON DAYS 1 AND 8
     Route: 048
     Dates: start: 20150720

REACTIONS (6)
  - Escherichia sepsis [Fatal]
  - Pneumonitis [Fatal]
  - Septic shock [Fatal]
  - Pneumonia [Unknown]
  - Neutropenia [Fatal]
  - Renal failure [Unknown]

NARRATIVE: CASE EVENT DATE: 20150728
